FAERS Safety Report 6807910-6 (Version None)
Quarter: 2010Q2

REPORT INFORMATION
  Report Type: 
  Country: None (occurrence: None)
  Receive Date: 20100629
  Receipt Date: 20090311
  Transmission Date: 20101027
  Serious: No
  Sender: FDA-Public Use
  Company Number: US-PFIZER INC-2009162379

PATIENT
  Sex: Female

DRUGS (3)
  1. XANAX [Interacting]
     Indication: PANIC ATTACK
  2. KETOCONOZOLE [Suspect]
     Indication: FUNGAL INFECTION
  3. KLONOPIN [Suspect]
     Indication: PANIC ATTACK
     Dosage: THREE TIMES A DAY

REACTIONS (1)
  - DRUG INTERACTION [None]
